FAERS Safety Report 8176928-6 (Version None)
Quarter: 2012Q1

REPORT INFORMATION
  Report Type: 
  Country: None (occurrence: None)
  Receive Date: 20120301
  Receipt Date: 20120222
  Transmission Date: 20120608
  Serious: Yes (Other)
  Sender: FDA-Public Use
  Company Number: CA-JNJFOC-20120211481

PATIENT
  Sex: Female
  Weight: 54.5 kg

DRUGS (4)
  1. REMICADE [Suspect]
     Indication: CROHN'S DISEASE
     Dosage: POST LOADING DOSES
     Route: 042
     Dates: start: 20120112
  2. REMICADE [Suspect]
     Route: 042
     Dates: start: 20120222
  3. ESOMEPRAZOLE SODIUM [Concomitant]
     Route: 065
  4. FAMOTIDINE [Concomitant]
     Route: 065

REACTIONS (9)
  - PYREXIA [None]
  - MUSCLE SPASMS [None]
  - GASTROOESOPHAGEAL REFLUX DISEASE [None]
  - ABDOMINAL PAIN [None]
  - PAIN [None]
  - OROPHARYNGEAL DISCOMFORT [None]
  - TREMOR [None]
  - DYSPNOEA [None]
  - INFUSION RELATED REACTION [None]
